FAERS Safety Report 8545585-9 (Version None)
Quarter: 2012Q3

REPORT INFORMATION
  Report Type: 
  Country: None (occurrence: None)
  Receive Date: 20120727
  Receipt Date: 20111026
  Transmission Date: 20120928
  Serious: No
  Sender: FDA-Public Use
  Company Number: US-ASTRAZENECA-2011SE65115

PATIENT
  Age: 26 Year
  Sex: Female

DRUGS (2)
  1. SEROQUEL XR [Suspect]
     Route: 048
  2. SLEEPING PILLS [Concomitant]
     Indication: ANXIETY

REACTIONS (7)
  - DRUG DOSE OMISSION [None]
  - FEELING ABNORMAL [None]
  - DRUG WITHDRAWAL SYNDROME [None]
  - IRRITABILITY [None]
  - NERVOUSNESS [None]
  - SOMATIC DELUSION [None]
  - INSOMNIA [None]
